FAERS Safety Report 11847043 (Version 2)
Quarter: 2016Q1

REPORT INFORMATION
  Report Type: Report from Study
  Country: US (occurrence: US)
  Receive Date: 20151217
  Receipt Date: 20160104
  Transmission Date: 20160526
  Serious: No
  Sender: FDA-Public Use
  Company Number: US-ASTRAZENECA-2015SE97685

PATIENT
  Sex: Female

DRUGS (1)
  1. IRESSA [Suspect]
     Active Substance: GEFITINIB
     Indication: METASTASES TO LUNG
     Dosage: UNKNOWN DOSE, QOD
     Route: 048

REACTIONS (3)
  - Dizziness [Not Recovered/Not Resolved]
  - Dysgeusia [Unknown]
  - Vision blurred [Not Recovered/Not Resolved]
